FAERS Safety Report 7444572-1 (Version None)
Quarter: 2011Q2

REPORT INFORMATION
  Report Type: 
  Country: None (occurrence: None)
  Receive Date: 20110429
  Receipt Date: 20110426
  Transmission Date: 20111010
  Serious: Yes (Other)
  Sender: FDA-Public Use
  Company Number: GB-PFIZER INC-2011090299

PATIENT
  Age: 18 Month
  Sex: Male
  Weight: 11 kg

DRUGS (7)
  1. CEFOTAXIME [Concomitant]
     Indication: CONVULSION
     Dosage: 500 MG, UNK
     Route: 042
     Dates: start: 20110404, end: 20110404
  2. PARALDEHYDE [Concomitant]
     Dosage: 4.4 ML, UNK
     Route: 042
     Dates: start: 20110404, end: 20110404
  3. DIAZEPAM [Concomitant]
     Indication: CONVULSION
     Dosage: UNK
     Route: 042
     Dates: start: 20110404, end: 20110404
  4. PHENYTOIN [Suspect]
     Indication: STATUS EPILEPTICUS
     Dosage: 198 MG, UNK
     Route: 042
     Dates: start: 20110404, end: 20110404
  5. DIAZEPAM [Concomitant]
     Indication: CONVULSION
     Dosage: 2.5 ML, UNK
     Route: 054
     Dates: start: 20110404, end: 20110404
  6. ACYCLOVIR [Concomitant]
     Dosage: 135 MG, UNK
     Route: 042
     Dates: start: 20110404, end: 20110404
  7. LORAZEPAM [Concomitant]
     Indication: CONVULSION
     Dosage: 1.1 MG, UNK
     Route: 042
     Dates: start: 20110404, end: 20110404

REACTIONS (5)
  - TACHYCARDIA [None]
  - PALLOR [None]
  - RASH [None]
  - STRIDOR [None]
  - ERYTHEMA [None]
